FAERS Safety Report 5947212-3 (Version None)
Quarter: 2008Q4

REPORT INFORMATION
  Report Type: 
  Country: None (occurrence: None)
  Receive Date: 20081110
  Receipt Date: 20081103
  Transmission Date: 20090506
  Serious: Yes (Other)
  Sender: FDA-Public Use
  Company Number: US-B.I. PHARMACEUTICALS,INC./RIDGEFIELD-2008-BP-16717BP

PATIENT
  Age: 81 Year
  Sex: Male

DRUGS (3)
  1. FLOMAX [Suspect]
     Dosage: .8MG
     Route: 048
     Dates: start: 20080301
  2. LISINOPRIL [Concomitant]
     Dosage: 5MG
  3. FUROSEMIDE [Concomitant]
     Dosage: 20MG

REACTIONS (2)
  - DIZZINESS [None]
  - PROSTATE CANCER [None]
